FAERS Safety Report 17356137 (Version 1)
Quarter: 2020Q1

REPORT INFORMATION
  Report Type: Spontaneous
  Country: TH (occurrence: TH)
  Receive Date: 20200131
  Receipt Date: 20200131
  Transmission Date: 20200409
  Serious: Yes (Death, Other)
  Sender: FDA-Public Use
  Company Number: TH-GLAXOSMITHKLINE-B0592805A

PATIENT

DRUGS (3)
  1. OSELTAMIVIR [Suspect]
     Active Substance: OSELTAMIVIR
     Route: 048
  2. RELENZA [Suspect]
     Active Substance: ZANAMIVIR
     Indication: H1N1 INFLUENZA
     Route: 055
     Dates: start: 20090902, end: 20090904
  3. DEXAMETHASONE. [Suspect]
     Active Substance: DEXAMETHASONE
     Route: 042

REACTIONS (6)
  - Respiratory distress [Fatal]
  - Device occlusion [Unknown]
  - Exposure during pregnancy [Unknown]
  - Hypoxia [Unknown]
  - Incorrect route of product administration [Unknown]
  - Pneumothorax [Unknown]

NARRATIVE: CASE EVENT DATE: 20090904
